FAERS Safety Report 7354963-5 (Version None)
Quarter: 2011Q1

REPORT INFORMATION
  Report Type: 
  Country: None (occurrence: None)
  Receive Date: 20110307
  Receipt Date: 20100608
  Transmission Date: 20110831
  Serious: Yes (Other)
  Sender: FDA-Public Use
  Company Number: 028244

PATIENT
  Age: 11 Year
  Sex: Female

DRUGS (1)
  1. KEPPRA [Suspect]
     Dosage: DRUG STRENGTH: 300 MG

REACTIONS (1)
  - CONVULSION [None]
